FAERS Safety Report 6072245-9 (Version None)
Quarter: 2009Q1

REPORT INFORMATION
  Report Type: 
  Country: None (occurrence: None)
  Receive Date: 20090206
  Receipt Date: 20090206
  Transmission Date: 20090719
  Serious: No
  Sender: FDA-Public Use
  Company Number: None

PATIENT
  Age: 86 Year
  Sex: Female
  Weight: 63.5036 kg

DRUGS (1)
  1. ROPINIROLE [Suspect]
     Indication: RESTLESS LEGS SYNDROME
     Dates: start: 20050415, end: 20070101

REACTIONS (8)
  - HAEMORRHAGE [None]
  - NECK INJURY [None]
  - OESOPHAGEAL INJURY [None]
  - PARANASAL SINUS HYPERSECRETION [None]
  - RETCHING [None]
  - SINUS DISORDER [None]
  - SLEEP DISORDER [None]
  - VOMITING [None]
